FAERS Safety Report 7618361-9 (Version None)
Quarter: 2011Q3

REPORT INFORMATION
  Report Type: 
  Country: None (occurrence: None)
  Receive Date: 20110718
  Receipt Date: 20110707
  Transmission Date: 20111222
  Serious: Yes (Other)
  Sender: FDA-Public Use
  Company Number: PHHY2011DE08896

PATIENT
  Sex: Female

DRUGS (1)
  1. LDT600 [Suspect]
     Indication: HEPATITIS B
     Dosage: 600 MG, QD
     Route: 048
     Dates: start: 20100212, end: 20101130

REACTIONS (2)
  - HEPATITIS B DNA INCREASED [None]
  - TREATMENT FAILURE [None]
